FAERS Safety Report 24848090 (Version 1)
Quarter: 2025Q1

REPORT INFORMATION
  Report Type: Other
  Country: FR (occurrence: FR)
  Receive Date: 20250116
  Receipt Date: 20250116
  Transmission Date: 20250408
  Serious: Yes (Other)
  Sender: ZYDUS PHARM
  Company Number: None

PATIENT

DRUGS (2)
  1. LEVOFLOXACIN [Suspect]
     Active Substance: LEVOFLOXACIN
     Indication: Drug provocation test
     Route: 048
     Dates: start: 20241205, end: 20241205
  2. OFLOXACIN [Suspect]
     Active Substance: OFLOXACIN
     Indication: Drug provocation test
     Route: 048
     Dates: start: 20241021, end: 20241021

REACTIONS (3)
  - Cross sensitivity reaction [Recovered/Resolved]
  - Angioedema [Recovered/Resolved]
  - Angioedema [Recovered/Resolved]

NARRATIVE: CASE EVENT DATE: 20241021
